FAERS Safety Report 10396590 (Version 1)
Quarter: 2014Q1

REPORT INFORMATION
  Report Type: Spontaneous
  Country: US (occurrence: None)
  Receive Date: 20130815
  Receipt Date: 20130815
  Transmission Date: 20141002
  Serious: Yes (Hospitalization, Other)
  Sender: FDA-Public Use
  Company Number: ADR-2012-01654

PATIENT
  Sex: Female

DRUGS (1)
  1. BACLOFEN INTRATHECAL [Suspect]
     Indication: MUSCLE SPASTICITY

REACTIONS (8)
  - Infection [None]
  - Urinary tract infection [None]
  - Dehydration [None]
  - Hypotension [None]
  - Metastatic neoplasm [None]
  - Overdose [None]
  - Confusional state [None]
  - Incorrect drug administration rate [None]
